FAERS Safety Report 6835370-8 (Version None)
Quarter: 2010Q3

REPORT INFORMATION
  Report Type: 
  Country: None (occurrence: None)
  Receive Date: 20100708
  Receipt Date: 20100629
  Transmission Date: 20110219
  Serious: Yes (Hospitalization)
  Sender: FDA-Public Use
  Company Number: 2010US002565

PATIENT
  Age: 38 Year
  Sex: Female

DRUGS (1)
  1. PROGRAF [Suspect]
     Indication: LUNG TRANSPLANT
     Dosage: 2 MG, BID, OTHER; ORAL
     Route: 048

REACTIONS (3)
  - DRUG LEVEL DECREASED [None]
  - INCORRECT ROUTE OF DRUG ADMINISTRATION [None]
  - OFF LABEL USE [None]
